FAERS Safety Report 9525563 (Version 2)
Quarter: 2013Q4

REPORT INFORMATION
  Report Type: Spontaneous
  Country: US (occurrence: US)
  Receive Date: 20130916
  Receipt Date: 20131029
  Transmission Date: 20140711
  Serious: No
  Sender: FDA-Public Use
  Company Number: US-009507513-1308USA012073

PATIENT
  Sex: Female

DRUGS (7)
  1. VICTRELIS [Suspect]
     Indication: HEPATITIS C
     Dosage: 800 MG, BID
     Route: 048
     Dates: start: 2013
  2. VICTRELIS [Suspect]
     Dosage: 800 MG, TID
     Route: 048
     Dates: start: 20130813
  3. REBETOL [Suspect]
     Indication: HEPATITIS C
     Dosage: UNK
     Route: 048
     Dates: start: 201307
  4. PEGASYS [Suspect]
     Indication: HEPATITIS C
     Dosage: PROCLICK, 180 MCG/ 0.5ML, QM
     Dates: start: 201307
  5. LISINOPRIL [Concomitant]
     Route: 048
  6. BISOPROLOL FUMARATE (+) HYDROCHLOROTHIAZIDE [Concomitant]
     Dosage: 10/6.25
     Route: 048
  7. TYLENOL [Concomitant]
     Route: 048

REACTIONS (4)
  - Nausea [Unknown]
  - Epistaxis [Recovered/Resolved]
  - Somnolence [Not Recovered/Not Resolved]
  - Anaemia [Not Recovered/Not Resolved]
